FAERS Safety Report 15833644 (Version 2)
Quarter: 2019Q1

REPORT INFORMATION
  Report Type: Spontaneous
  Country: DE (occurrence: DE)
  Receive Date: 20190116
  Receipt Date: 20190125
  Transmission Date: 20190417
  Serious: Yes (Hospitalization)
  Sender: FDA-Public Use
  Company Number: DE-PFIZER INC-2019018330

PATIENT
  Age: 83 Year
  Sex: Male

DRUGS (12)
  1. PANTOPRAZOLE [Suspect]
     Active Substance: PANTOPRAZOLE
     Dosage: 180 MG, SINGLE DOSE
     Route: 048
     Dates: start: 20181226, end: 20181226
  2. XARELTO [Suspect]
     Active Substance: RIVAROXABAN
     Dosage: 105 MG, UNK
     Route: 048
     Dates: start: 20181226, end: 20181226
  3. CANDECOR COMP [Suspect]
     Active Substance: CANDESARTAN CILEXETIL\HYDROCHLOROTHIAZIDE
     Dosage: UNK
     Route: 048
     Dates: start: 20181226, end: 20181226
  4. SERTRALINE [Suspect]
     Active Substance: SERTRALINE HYDROCHLORIDE
     Dosage: UNK
     Route: 048
     Dates: start: 20181226, end: 20181226
  5. PREDNISOLONE. [Suspect]
     Active Substance: PREDNISOLONE
     Dosage: UNK
     Route: 048
     Dates: start: 20181226, end: 20181226
  6. FERRO-SANOL DUODENAL [Suspect]
     Active Substance: FERROUS GLYCINE SULFATE
     Dosage: UNK
     Route: 048
     Dates: start: 20181226, end: 20181226
  7. SIMVASTATIN. [Suspect]
     Active Substance: SIMVASTATIN
     Dosage: UNK
     Route: 048
     Dates: start: 20181226, end: 20181226
  8. VIGANTOLETTEN [Suspect]
     Active Substance: CHOLECALCIFEROL
     Dosage: 7000 IU, UNK
     Route: 048
     Dates: start: 20181226, end: 20181226
  9. METHOCARBAMOL. [Suspect]
     Active Substance: METHOCARBAMOL
     Dosage: UNK
     Route: 048
     Dates: start: 20181226, end: 20181226
  10. PIPAMPERONE [Suspect]
     Active Substance: PIPAMPERONE
     Dosage: UNK
     Route: 048
     Dates: start: 20181226, end: 20181226
  11. METFORMIN HYDROCHLORIDE. [Suspect]
     Active Substance: METFORMIN HYDROCHLORIDE
     Dosage: UNK
     Route: 048
     Dates: start: 20181226, end: 20181226
  12. TILIDIN COMP [Suspect]
     Active Substance: NALOXONE HYDROCHLORIDE\TILIDINE HYDROCHLORIDE
     Dosage: UNK
     Route: 048
     Dates: start: 20181226, end: 20181226

REACTIONS (4)
  - Overdose [Unknown]
  - Hypertension [Unknown]
  - Fatigue [Unknown]
  - Suicidal ideation [Unknown]

NARRATIVE: CASE EVENT DATE: 20181226
